FAERS Safety Report 10245233 (Version 1)
Quarter: 2014Q2

REPORT INFORMATION
  Report Type: Spontaneous
  Country: FR (occurrence: FR)
  Receive Date: 20140618
  Receipt Date: 20140618
  Transmission Date: 20141212
  Serious: Yes (Hospitalization)
  Sender: FDA-Public Use
  Company Number: FR-ROCHE-1420144

PATIENT
  Age: 73 Year
  Sex: Male

DRUGS (3)
  1. ZELBORAF [Suspect]
     Indication: PRODUCT USED FOR UNKNOWN INDICATION
     Route: 065
  2. ZELBORAF [Suspect]
     Route: 065
  3. ZELBORAF [Suspect]
     Route: 065

REACTIONS (2)
  - Vertigo [Not Recovered/Not Resolved]
  - Abdominal discomfort [Recovered/Resolved]
